FAERS Safety Report 8058528-1 (Version None)
Quarter: 2012Q1

REPORT INFORMATION
  Report Type: 
  Country: None (occurrence: None)
  Receive Date: 20120120
  Receipt Date: 20120105
  Transmission Date: 20120608
  Serious: Yes (Hospitalization)
  Sender: FDA-Public Use
  Company Number: FR-CELGENEUS-056-21880-11072992

PATIENT
  Sex: Male
  Weight: 94.3 kg

DRUGS (17)
  1. NEORECORMON [Suspect]
     Indication: MYELODYSPLASTIC SYNDROME
     Route: 058
     Dates: start: 20110517, end: 20110615
  2. OMEPRAZOLE [Concomitant]
     Dosage: 20 MILLIGRAM
     Route: 048
  3. ULTRA-LEVURE [Concomitant]
     Route: 065
  4. NEORECORMON [Suspect]
     Route: 058
     Dates: start: 20110627, end: 20110710
  5. COUMADIN [Concomitant]
     Dosage: .5 MILLIGRAM
     Route: 048
  6. ACETAMINOPHEN [Concomitant]
     Dosage: 500 MILLIGRAM
     Route: 048
  7. ESCITALOPRAM OXALATE [Concomitant]
     Dosage: 5 MILLIGRAM
     Route: 048
     Dates: start: 20090101
  8. ACETAMINOPHEN [Concomitant]
     Route: 065
  9. REVLIMID [Suspect]
     Dosage: 10 MILLIGRAM
     Route: 048
     Dates: start: 20110627, end: 20110710
  10. PREDNISONE TAB [Concomitant]
     Dosage: 20 MILLIGRAM
     Route: 048
  11. PRAVASTATIN [Concomitant]
     Dosage: 20 MILLIGRAM
     Route: 048
  12. SPIRIVA [Concomitant]
     Route: 065
  13. VERSTATIS [Concomitant]
     Route: 048
     Dates: start: 20110601
  14. ACUPAN [Concomitant]
     Route: 065
  15. REVLIMID [Suspect]
     Indication: MYELODYSPLASTIC SYNDROME
     Dosage: 10 MILLIGRAM
     Route: 048
     Dates: start: 20110517, end: 20110606
  16. TRAMADOL HCL [Concomitant]
     Dosage: 100 MILLIGRAM
     Route: 048
  17. RED BLOOD CELLS [Concomitant]
     Route: 065

REACTIONS (2)
  - ARTERIAL THROMBOSIS LIMB [None]
  - SKIN LESION [None]
